FAERS Safety Report 6977189-3 (Version None)
Quarter: 2010Q3

REPORT INFORMATION
  Report Type: 
  Country: None (occurrence: None)
  Receive Date: 20100910
  Receipt Date: 20100831
  Transmission Date: 20110219
  Serious: Yes (Disabling, Other)
  Sender: FDA-Public Use
  Company Number: US-PFIZER INC-2010110429

PATIENT
  Sex: Male
  Weight: 97.506 kg

DRUGS (4)
  1. DILANTIN [Suspect]
     Indication: CONVULSION
     Dosage: UNK
     Route: 048
     Dates: start: 19921004
  2. CELEBREX [Suspect]
     Indication: BACK PAIN
     Dosage: 200 MG, 2X/DAY
     Route: 048
  3. STRATTERA [Concomitant]
     Dosage: 40 MG, UNK
  4. GABAPENTIN [Concomitant]
     Dosage: 600 MG, DAILY

REACTIONS (4)
  - ANTICONVULSANT DRUG LEVEL INCREASED [None]
  - BACK PAIN [None]
  - INTERVERTEBRAL DISC DEGENERATION [None]
  - INTERVERTEBRAL DISC PROTRUSION [None]
